FAERS Safety Report 9630575 (Version 1)
Quarter: 2013Q4

REPORT INFORMATION
  Report Type: Spontaneous
  Country: GB (occurrence: GB)
  Receive Date: 20131018
  Receipt Date: 20131018
  Transmission Date: 20140711
  Serious: Yes (Other)
  Sender: FDA-Public Use
  Company Number: PHFR2013GB005840

PATIENT
  Sex: Female

DRUGS (1)
  1. TEGRETOL [Suspect]
     Dosage: 1200 MG, DAILY (400 MG IN MORNING AND 800 MG IN EVENING)
     Route: 048

REACTIONS (1)
  - Consciousness fluctuating [Unknown]
